FAERS Safety Report 13883314 (Version 1)
Quarter: 2017Q3

REPORT INFORMATION
  Report Type: Report from Study
  Country: CO (occurrence: CO)
  Receive Date: 20170818
  Receipt Date: 20170818
  Transmission Date: 20171127
  Serious: Yes (Death, Other)
  Sender: FDA-Public Use
  Company Number: CO-AMGEN-COLSL2017015357

PATIENT
  Age: 46 Year
  Sex: Male

DRUGS (3)
  1. MIMPARA [Suspect]
     Active Substance: CINACALCET HYDROCHLORIDE
     Indication: HYPERPARATHYROIDISM SECONDARY
     Dosage: 30 MG, QD
     Route: 048
     Dates: start: 20150208
  2. MIMPARA [Suspect]
     Active Substance: CINACALCET HYDROCHLORIDE
     Dosage: UNK, QOD
     Route: 048
  3. MIMPARA [Suspect]
     Active Substance: CINACALCET HYDROCHLORIDE
     Dosage: 60 MG, OTHER
     Route: 048

REACTIONS (3)
  - Hypocalcaemia [Not Recovered/Not Resolved]
  - Infarction [Fatal]
  - Surgery [Unknown]

NARRATIVE: CASE EVENT DATE: 20170118
